FAERS Safety Report 11217349 (Version 1)
Quarter: 2015Q2

REPORT INFORMATION
  Report Type: Spontaneous
  Country: FR (occurrence: FR)
  Receive Date: 20150625
  Receipt Date: 20150625
  Transmission Date: 20150821
  Serious: Yes (Hospitalization)
  Sender: FDA-Public Use
  Company Number: FR-ROCHE-1598722

PATIENT
  Sex: Male

DRUGS (17)
  1. CACIT VITAMINE D3 [Concomitant]
     Active Substance: CALCIUM CARBONATE\CHOLECALCIFEROL
  2. NEURONTIN [Concomitant]
     Active Substance: GABAPENTIN
  3. ADVAGRAF [Suspect]
     Active Substance: TACROLIMUS
     Indication: LUNG TRANSPLANT
     Route: 048
     Dates: start: 201406
  4. CERTICAN [Suspect]
     Active Substance: EVEROLIMUS
     Indication: LUNG TRANSPLANT
     Route: 048
     Dates: start: 2010
  5. ACTISKENAN [Concomitant]
     Active Substance: MORPHINE SULFATE
  6. PARACETAMOL [Concomitant]
     Active Substance: ACETAMINOPHEN
     Route: 065
  7. CELLCEPT [Suspect]
     Active Substance: MYCOPHENOLATE MOFETIL\MYCOPHENOLATE MOFETIL HYDROCHLORIDE
     Indication: LUNG TRANSPLANT
     Route: 048
  8. LERCAN [Concomitant]
     Active Substance: LERCANIDIPINE
  9. ACLASTA [Concomitant]
     Active Substance: ZOLEDRONIC ACID
  10. ZITHROMAX [Concomitant]
     Active Substance: AZITHROMYCIN DIHYDRATE
     Route: 065
  11. TERCIAN [Concomitant]
     Active Substance: CYAMEMAZINE
     Route: 065
  12. LAROXYL [Concomitant]
     Active Substance: AMITRIPTYLINE
  13. DUROGESIC [Concomitant]
     Active Substance: FENTANYL
  14. LEVOTHYROX [Concomitant]
     Active Substance: LEVOTHYROXINE
  15. UVEDOSE [Concomitant]
     Active Substance: CHOLECALCIFEROL
  16. SINGULAIR [Concomitant]
     Active Substance: MONTELUKAST SODIUM
     Route: 065
  17. CORTANCYL [Suspect]
     Active Substance: PREDNISONE
     Indication: LUNG TRANSPLANT
     Route: 048
     Dates: start: 2010

REACTIONS (3)
  - Skin papilloma [Not Recovered/Not Resolved]
  - Neoplasm malignant [Not Recovered/Not Resolved]
  - Squamous cell carcinoma [Not Recovered/Not Resolved]

NARRATIVE: CASE EVENT DATE: 2013
